FAERS Safety Report 21119272 (Version 12)
Quarter: 2025Q2

REPORT INFORMATION
  Report Type: Spontaneous
  Country: US (occurrence: US)
  Receive Date: 20220722
  Receipt Date: 20250516
  Transmission Date: 20250716
  Serious: Yes (Other)
  Sender: AMGEN
  Company Number: US-PFIZER INC-PV202200026016

PATIENT
  Age: 62 Year
  Sex: Female

DRUGS (1)
  1. ENBREL [Suspect]
     Active Substance: ETANERCEPT
     Indication: Product used for unknown indication
     Route: 065

REACTIONS (6)
  - Arthropathy [Unknown]
  - Disease progression [Unknown]
  - Bone disorder [Unknown]
  - Drug ineffective [Unknown]
  - Retinal disorder [Unknown]
  - Asthma [Unknown]
